FAERS Safety Report 9367931 (Version 1)
Quarter: 2013Q2

REPORT INFORMATION
  Report Type: Spontaneous
  Country: US (occurrence: US)
  Receive Date: 20130625
  Receipt Date: 20130625
  Transmission Date: 20140414
  Serious: No
  Sender: FDA-Public Use
  Company Number: US-ASTELLAS-2012US010877

PATIENT
  Sex: Female
  Weight: 68 kg

DRUGS (5)
  1. VESICARE [Suspect]
     Indication: HYPERTONIC BLADDER
     Dosage: 5 MG, UID/QD
     Route: 048
  2. REQUIP [Concomitant]
     Indication: PARKINSON^S DISEASE
     Dosage: 20 MG, TID
     Route: 048
  3. SINEMET [Concomitant]
     Indication: PARKINSON^S DISEASE
     Dosage: 10 MG, TID
     Route: 048
  4. LISINOPRIL [Concomitant]
     Dosage: 20 MG, BID
     Route: 048
  5. HYDROCHLOROTHIAZIDE [Concomitant]
     Indication: POLYURIA
     Dosage: 12.5 MG, UID/QD
     Route: 048

REACTIONS (1)
  - Urinary tract infection [Unknown]
